FAERS Safety Report 8572940-3 (Version None)
Quarter: 2012Q3

REPORT INFORMATION
  Report Type: 
  Country: None (occurrence: None)
  Receive Date: 20120806
  Receipt Date: 20120409
  Transmission Date: 20120928
  Serious: No
  Sender: FDA-Public Use
  Company Number: US-009507513-2012SP014287

PATIENT

DRUGS (3)
  1. CORICIDIN [Suspect]
     Indication: RHINORRHOEA
     Dosage: 1 DF, Q6H
     Route: 048
     Dates: start: 20120226
  2. DIOVAN [Concomitant]
     Indication: HYPERTENSION
     Dosage: 160 DF, UNKNOWN
  3. CORICIDIN [Suspect]
     Indication: MEDICAL OBSERVATION
     Dosage: 1 DF, BID
     Route: 048
     Dates: start: 20120227

REACTIONS (3)
  - NAUSEA [None]
  - DIARRHOEA [None]
  - ABDOMINAL DISCOMFORT [None]
